FAERS Safety Report 6690668-1 (Version None)
Quarter: 2010Q2

REPORT INFORMATION
  Report Type: 
  Country: None (occurrence: None)
  Receive Date: 20100421
  Receipt Date: 20090515
  Transmission Date: 20101027
  Serious: No
  Sender: FDA-Public Use
  Company Number: US-BRISTOL-MYERS SQUIBB COMPANY-14627004

PATIENT
  Sex: Male

DRUGS (1)
  1. HYDROXYUREA [Suspect]

REACTIONS (2)
  - OEDEMA [None]
  - RASH [None]
